FAERS Safety Report 5497789-X (Version None)
Quarter: 2007Q4

REPORT INFORMATION
  Report Type: 
  Country: None (occurrence: None)
  Receive Date: 20071025
  Receipt Date: 20070301
  Transmission Date: 20080405
  Serious: No
  Sender: FDA-Public Use
  Company Number: A0641498A

PATIENT
  Age: 66 Year
  Sex: Male

DRUGS (8)
  1. ADVAIR DISKUS 100/50 [Suspect]
     Indication: CHRONIC OBSTRUCTIVE PULMONARY DISEASE
     Dosage: 1PUFF TWICE PER DAY
     Route: 055
  2. SPIRIVA [Concomitant]
  3. ALBUTEROL [Concomitant]
  4. VITAMIN A [Concomitant]
  5. ASCORBIC ACID [Concomitant]
  6. VITAMIN E [Concomitant]
  7. FISH OIL [Concomitant]
  8. VIDEX [Concomitant]

REACTIONS (3)
  - ADVERSE EVENT [None]
  - DYSPNOEA [None]
  - VISUAL DISTURBANCE [None]
